FAERS Safety Report 6094225-X (Version None)
Quarter: 2009Q1

REPORT INFORMATION
  Report Type: 
  Country: None (occurrence: None)
  Receive Date: 20090226
  Receipt Date: 20090217
  Transmission Date: 20090719
  Serious: Yes (Disabling, Other)
  Sender: FDA-Public Use
  Company Number: PHEH2009US01795

PATIENT
  Sex: Female
  Weight: 70.295 kg

DRUGS (1)
  1. TRILEPTAL [Suspect]
     Indication: BIPOLAR DISORDER
     Dosage: 150 MG, BID
     Route: 048
     Dates: start: 20081211, end: 20090108

REACTIONS (5)
  - INTERSTITIAL LUNG DISEASE [None]
  - LUNG DISORDER [None]
  - OXYGEN SATURATION DECREASED [None]
  - RESPIRATORY DISTRESS [None]
  - SCAR [None]
